FAERS Safety Report 4521727-7 (Version None)
Quarter: 2004Q4

REPORT INFORMATION
  Report Type: 
  Country: None (occurrence: None)
  Receive Date: 20041209
  Receipt Date: 20041130
  Transmission Date: 20050328
  Serious: Yes (Other)
  Sender: FDA-Public Use
  Company Number: PHEH2004US12876

PATIENT
  Age: 65 Year
  Sex: Female

DRUGS (5)
  1. MIACALCIN [Suspect]
     Indication: OSTEOPOROSIS
     Dosage: 200 IU, QD
     Dates: start: 20040901
  2. SYNTHROID [Concomitant]
  3. FOSAMAX [Concomitant]
  4. PLAQUENIL [Concomitant]
  5. NEXIUM [Concomitant]

REACTIONS (5)
  - ARTHRITIS [None]
  - BACK PAIN [None]
  - DRUG INEFFECTIVE [None]
  - OSTEOARTHRITIS [None]
  - TRIGGER FINGER [None]
